FAERS Safety Report 10810843 (Version 1)
Quarter: 2015Q1

REPORT INFORMATION
  Report Type: Spontaneous
  Country: US (occurrence: None)
  Receive Date: 20150213
  Receipt Date: 20150213
  Transmission Date: 20150721
  Serious: No
  Sender: FDA-Public Use
  Company Number: None

PATIENT
  Age: 61 Year
  Sex: Female

DRUGS (1)
  1. HYDROCDON-ACETAMINOPH 7.5-325 [Suspect]
     Active Substance: ACETAMINOPHEN\HYDROCODONE
     Indication: PAIN
     Dosage: 7.5-325, 1 X 4 A DAY, 3 DAILY, 1 BED, BY MOUTH
     Route: 048
     Dates: start: 2008

REACTIONS (2)
  - Pruritus [None]
  - Reaction to colouring [None]

NARRATIVE: CASE EVENT DATE: 20150120
